FAERS Safety Report 23865548 (Version 1)
Quarter: 2024Q2

REPORT INFORMATION
  Report Type: Spontaneous
  Country: BE (occurrence: BE)
  Receive Date: 20240517
  Receipt Date: 20240517
  Transmission Date: 20240716
  Serious: Yes (Life-Threatening, Hospitalization, Other)
  Sender: FDA-Public Use
  Company Number: BE-SANDOZ-SDZ2024BE049216

PATIENT
  Age: 88 Year
  Sex: Male

DRUGS (1)
  1. ACLASTA [Suspect]
     Active Substance: ZOLEDRONIC ACID
     Indication: Osteoporosis
     Dosage: 5 MG
     Route: 065

REACTIONS (3)
  - Renal tubular necrosis [Unknown]
  - Fall [Unknown]
  - Asthenia [Unknown]
